FAERS Safety Report 7596558-4 (Version None)
Quarter: 2011Q3

REPORT INFORMATION
  Report Type: 
  Country: None (occurrence: None)
  Receive Date: 20110708
  Receipt Date: 20110627
  Transmission Date: 20111222
  Serious: Yes (Hospitalization)
  Sender: FDA-Public Use
  Company Number: DE-AMGEN-DEUCT2011030553

PATIENT
  Age: 56 Year
  Sex: Female
  Weight: 65 kg

DRUGS (5)
  1. CELEBREX [Concomitant]
     Indication: RHEUMATOID ARTHRITIS
     Dosage: 200 - 400 MG/DAY
     Route: 048
     Dates: start: 20080101
  2. PREDNISOLONE [Concomitant]
     Indication: RHEUMATOID ARTHRITIS
     Dosage: 5 MG, 1X/DAY
     Route: 048
     Dates: start: 20090101, end: 20110201
  3. ETANERCEPT [Suspect]
     Indication: RHEUMATOID ARTHRITIS
     Dosage: 50 MG, QWK
     Route: 058
     Dates: start: 20110214, end: 20110228
  4. AMITRIPTYLINE HCL [Concomitant]
     Indication: DEPRESSION
     Dosage: 35 MG, 1X/DAY
     Route: 048
     Dates: start: 20100101
  5. PREDNISOLONE [Concomitant]
     Dosage: 20 MG, 1X/DAY
     Route: 048
     Dates: start: 20110201

REACTIONS (2)
  - BACTERIAL INFECTION [None]
  - POST PROCEDURAL INFECTION [None]
